FAERS Safety Report 7782781-2 (Version None)
Quarter: 2011Q3

REPORT INFORMATION
  Report Type: 
  Country: None (occurrence: None)
  Receive Date: 20110928
  Receipt Date: 20110923
  Transmission Date: 20111222
  Serious: Yes (Congenital Anomaly, Other)
  Sender: FDA-Public Use
  Company Number: US-PFIZER INC-2011077299

PATIENT
  Sex: Female
  Weight: 4 kg

DRUGS (3)
  1. ZOLOFT [Suspect]
     Dosage: 100 MG, UNK
     Route: 064
  2. AMBIEN [Concomitant]
     Dosage: 5 MG, UNK
  3. PRENATAL VITAMINS [Concomitant]
     Dosage: UNK

REACTIONS (10)
  - PATENT DUCTUS ARTERIOSUS [None]
  - ATRIAL SEPTAL DEFECT [None]
  - MITRAL VALVE INCOMPETENCE [None]
  - TRICUSPID VALVE INCOMPETENCE [None]
  - MATERNAL EXPOSURE DURING PREGNANCY [None]
  - PULMONARY VALVE INCOMPETENCE [None]
  - CARDIOMEGALY [None]
  - GASTROOESOPHAGEAL REFLUX DISEASE [None]
  - VENTRICULAR SEPTAL DEFECT [None]
  - CARDIAC FAILURE CONGESTIVE [None]
